FAERS Safety Report 9664193 (Version 1)
Quarter: 2013Q4

REPORT INFORMATION
  Report Type: Spontaneous
  Country: US (occurrence: None)
  Receive Date: 20131030
  Receipt Date: 20131030
  Transmission Date: 20140711
  Serious: Yes (Life-Threatening, Hospitalization)
  Sender: FDA-Public Use
  Company Number: None

PATIENT
  Age: 35 Year
  Sex: Female
  Weight: 72.7 kg

DRUGS (7)
  1. SULFAMETHOXAZOLE-TRIMETHOPRIM [Suspect]
     Indication: URINARY TRACT INFECTION
     Dosage: 800MG-160MG  BID ORAL
     Route: 048
     Dates: start: 20131001, end: 20131007
  2. CALCIUM CARBONATE [Concomitant]
  3. ERGOCALCIFEROL [Concomitant]
  4. LEVOTHYROXINE [Concomitant]
  5. MULTIVITAMIN B-COMPLEX [Concomitant]
  6. PRO-BIOTIC [Concomitant]
  7. FISH OIL [Concomitant]

REACTIONS (12)
  - Increased tendency to bruise [None]
  - Menorrhagia [None]
  - Platelet count abnormal [None]
  - Contusion [None]
  - Contusion [None]
  - Contusion [None]
  - Gingival bleeding [None]
  - Oral pain [None]
  - Dizziness [None]
  - Fatigue [None]
  - Myalgia [None]
  - Arthralgia [None]
